FAERS Safety Report 8511942-X (Version None)
Quarter: 2012Q3

REPORT INFORMATION
  Report Type: 
  Country: None (occurrence: None)
  Receive Date: 20120711
  Receipt Date: 20120711
  Transmission Date: 20120928
  Serious: Yes (Other)
  Sender: FDA-Public Use
  Company Number: None

PATIENT
  Age: 74 Year
  Sex: Male

DRUGS (1)
  1. KLOR-CON [Suspect]
     Indication: BLOOD POTASSIUM
     Dosage: 1 TAB THREE TIMES DAILY

REACTIONS (2)
  - PRODUCT SOLUBILITY ABNORMAL [None]
  - COLITIS [None]
